FAERS Safety Report 22277061 (Version 4)
Quarter: 2024Q2

REPORT INFORMATION
  Report Type: Spontaneous
  Country: US (occurrence: US)
  Receive Date: 20230503
  Receipt Date: 20240530
  Transmission Date: 20240716
  Serious: No
  Sender: FDA-Public Use
  Company Number: US-SA-SAC20230501000351

PATIENT
  Age: 66 Year
  Sex: Female

DRUGS (2)
  1. DUPIXENT [Suspect]
     Active Substance: DUPILUMAB
     Indication: Asthma
     Dosage: 300 MG, OTHER
     Route: 058
  2. DUPIXENT [Suspect]
     Active Substance: DUPILUMAB
     Dosage: 300 MG, QOW
     Route: 058
     Dates: start: 202307

REACTIONS (10)
  - Fatigue [Unknown]
  - Cough [Not Recovered/Not Resolved]
  - Throat clearing [Not Recovered/Not Resolved]
  - Bronchitis [Recovering/Resolving]
  - Dyspnoea [Unknown]
  - Middle insomnia [Unknown]
  - Nasopharyngitis [Recovered/Resolved]
  - Asthma [Unknown]
  - Injection site erythema [Unknown]
  - Therapeutic product effect decreased [Unknown]

NARRATIVE: CASE EVENT DATE: 20240101
